FAERS Safety Report 24530663 (Version 2)
Quarter: 2024Q4

REPORT INFORMATION
  Report Type: Report from Study
  Country: US (occurrence: US)
  Receive Date: 20241021
  Receipt Date: 20241101
  Transmission Date: 20250114
  Serious: Yes (Death, Other)
  Sender: DAIICHI
  Company Number: US-DSJP-DSU-2024-140652

PATIENT
  Age: 73 Year
  Sex: Female
  Weight: 53.3 kg

DRUGS (10)
  1. ENHERTU [Suspect]
     Active Substance: FAM-TRASTUZUMAB DERUXTECAN-NXKI
     Indication: Breast cancer female
     Dosage: 323 MG, ONCE EVERY 3 WK (OVER 90 MINUTES)
     Route: 042
     Dates: start: 20240509, end: 20240509
  2. ENHERTU [Suspect]
     Active Substance: FAM-TRASTUZUMAB DERUXTECAN-NXKI
     Indication: Triple negative breast cancer
     Dosage: UNK UNK, ONCE EVERY 3 WK
     Route: 042
     Dates: start: 20240729, end: 20240729
  3. VITAMIN B COMPLEX NOS [Concomitant]
     Active Substance: CYANOCOBALAMIN\PYRIDOXINE HYDROCHLORIDE\RIBOFLAVIN\SODIUM PANTOTHENATE\THIAMINE HYDROCHLORIDE\VITAMI
     Indication: Product used for unknown indication
     Dosage: 1 DF, QD
     Route: 048
  4. CAPECITABINE [Concomitant]
     Active Substance: CAPECITABINE
     Indication: Product used for unknown indication
     Dosage: 1500 MG, BID
     Route: 048
  5. VITAMIN D3 [Concomitant]
     Active Substance: CHOLECALCIFEROL
     Indication: Product used for unknown indication
     Dosage: QD
     Route: 048
  6. FAMOTIDINE [Concomitant]
     Active Substance: FAMOTIDINE
     Indication: Product used for unknown indication
     Dosage: 20 MG, BID
     Route: 048
  7. DAILY VITE [ASCORBIC ACID;CALCIUM PANTOTHENATE;COLECALCIFEROL;CYANOCOB [Concomitant]
     Indication: Product used for unknown indication
     Dosage: UNK
     Route: 065
  8. OMEPRAZOLE MAGNESIUM [Concomitant]
     Active Substance: OMEPRAZOLE MAGNESIUM
     Indication: Product used for unknown indication
     Dosage: 20 MG
     Route: 065
  9. MORPHINE SULFATE [Concomitant]
     Active Substance: MORPHINE SULFATE
     Dosage: 3 MG/ML
     Route: 061
  10. SACITUZUMAB GOVITECAN [Concomitant]
     Active Substance: SACITUZUMAB GOVITECAN
     Indication: Product used for unknown indication
     Route: 065

REACTIONS (8)
  - Death [Fatal]
  - Neutropenia [Unknown]
  - Metastases to liver [Unknown]
  - Metastases to central nervous system [Unknown]
  - Cancer pain [Unknown]
  - Pleural effusion [Unknown]
  - Disease progression [Unknown]
  - Off label use [Unknown]

NARRATIVE: CASE EVENT DATE: 20240509
